FAERS Safety Report 14992798 (Version 1)
Quarter: 2018Q2

REPORT INFORMATION
  Report Type: Spontaneous
  Country: DE (occurrence: DE)
  Receive Date: 20180609
  Receipt Date: 20180609
  Transmission Date: 20180711
  Serious: Yes (Hospitalization)
  Sender: FDA-Public Use
  Company Number: DE-TEVA-2018-DE-903035

PATIENT
  Age: 76 Year
  Sex: Male

DRUGS (2)
  1. GLIBENCLAMIDE [Suspect]
     Active Substance: GLYBURIDE
     Dosage: 3.5 MG, NK
     Route: 065
  2. ENALAPRIL [Concomitant]
     Active Substance: ENALAPRIL
     Dosage: NK MG, NK
     Route: 065

REACTIONS (3)
  - Hypotension [Unknown]
  - Hypoglycaemia [Unknown]
  - Syncope [Unknown]
